FAERS Safety Report 20477243 (Version 2)
Quarter: 2022Q1

REPORT INFORMATION
  Report Type: Report from Study
  Country: DO (occurrence: DO)
  Receive Date: 20220215
  Receipt Date: 20220323
  Transmission Date: 20220423
  Serious: Yes (Death, Hospitalization)
  Sender: FDA-Public Use
  Company Number: DO-JNJFOC-20220229693

PATIENT
  Age: 85 Year

DRUGS (1)
  1. IMBRUVICA [Suspect]
     Active Substance: IBRUTINIB
     Indication: Chronic lymphocytic leukaemia
     Route: 048

REACTIONS (4)
  - Death [Fatal]
  - Gastric haemorrhage [Fatal]
  - Thrombocytopenia [Fatal]
  - Product dose omission issue [Unknown]
